FAERS Safety Report 8472140-1 (Version None)
Quarter: 2012Q2

REPORT INFORMATION
  Report Type: 
  Country: None (occurrence: None)
  Receive Date: 20120627
  Receipt Date: 20120620
  Transmission Date: 20120825
  Serious: Yes (Death, Hospitalization)
  Sender: FDA-Public Use
  Company Number: US-ALEXION PHARMACEUTICALS INC.-A201200792

PATIENT
  Sex: Male
  Weight: 99.8 kg

DRUGS (42)
  1. FLUTICASONE [Concomitant]
     Dosage: 0.05%, BID SPRAY
  2. MAGNESIUM SULFATE [Concomitant]
     Indication: MAGNESIUM DEFICIENCY
     Dosage: 2 G, PRN Q1H
     Route: 042
  3. SUCRALFATE [Concomitant]
     Dosage: 1 G, BID ACHS
  4. PERCOCET [Concomitant]
     Indication: PAIN
     Dosage: 5MG-325MG Q4H PRN
  5. MORPHINE SULFATE [Concomitant]
     Dosage: 4MG TO 6MG Q4H PRN UNK
     Route: 042
  6. HYDROCORTISONE SODIUM SUCCINATE [Concomitant]
     Dosage: 80 MG, QID
     Route: 042
  7. NOREPINEPHRINE BITARTRATE [Concomitant]
     Dosage: 0MCG TO 100MCG PER MIN UNK
     Route: 042
  8. VANCOMYCIN [Concomitant]
     Dosage: 250 MG, QID
     Route: 051
  9. NEXIUM [Concomitant]
     Dosage: 20 MG, BID
     Route: 042
  10. SOLIRIS [Suspect]
     Indication: MALIGNANT ATROPHIC PAPULOSIS
     Dosage: 1200 MG, SINGLE
     Route: 042
     Dates: start: 20120315, end: 20120315
  11. VANCOMYCIN [Concomitant]
     Dosage: 250 MG, TID
     Route: 051
  12. PREDNISONE TAB [Concomitant]
     Dosage: 1 MG, QD
  13. SARNA [Concomitant]
     Dosage: UNK, BID
  14. OXYCODONE HCL [Concomitant]
     Indication: PAIN
     Dosage: 5 MG, QID PRN
  15. HYDROCORTISONE SODIUM SUCCINATE [Concomitant]
     Dosage: 60 MG, TID
     Route: 042
  16. FRAGMIN [Concomitant]
     Dosage: 5000 UNITS QD
     Route: 058
  17. IMMUNE GLOBULIN NOS [Concomitant]
     Dosage: UNK
     Route: 042
  18. VANCOMYCIN [Concomitant]
     Dosage: 500 MG UNK
     Route: 051
     Dates: start: 20120401
  19. FLAGYL [Concomitant]
     Dosage: 500 MG, TID
     Route: 042
     Dates: start: 20120401
  20. LINEZOLID [Concomitant]
     Dosage: 600 MG, UNK
     Route: 042
     Dates: start: 20120321
  21. ENOXAPARIN [Concomitant]
     Dosage: 70 MG, QD
  22. FOLIC ACID [Concomitant]
     Dosage: 1 MG, QD
  23. ONDANSETRON (ZOFRAN) [Concomitant]
     Indication: NAUSEA
     Dosage: 4 MG, PRN Q5H
     Route: 042
  24. MICAFUNGIN [Concomitant]
     Dosage: 100 MG, QD
     Route: 042
  25. POTASSIUM CHLORIDE [Concomitant]
     Indication: MINERAL SUPPLEMENTATION
     Dosage: 20 MEQ, PRN Q1H
     Route: 042
  26. DEXTROSE WATER [Concomitant]
     Dosage: 30 ML PER HR UNK
     Route: 042
  27. LINEZOLID [Concomitant]
     Dosage: 600 MG, BID
     Route: 042
  28. ETHACRYNIC ACID [Concomitant]
     Dosage: 50 MG, QD
  29. FEXOFENADINE [Concomitant]
     Dosage: 60 MG, BID
  30. IMIPENEM/CILASTATIN [Concomitant]
     Dosage: 500 MG, QID
     Route: 042
  31. SODIUM PHOSPHATE [Concomitant]
     Indication: BLOOD PHOSPHORUS DECREASED
     Dosage: 15 MMOL, PRN Q6H
     Route: 042
  32. SOLIRIS [Suspect]
     Dosage: 900 MG, QW
     Route: 042
     Dates: start: 20110201
  33. ALBUTEROL [Concomitant]
     Indication: WHEEZING
     Dosage: UNK, PRN
  34. MICONAZOLE [Concomitant]
     Dosage: UNK, Q8H
  35. MULTI-VITAMIN [Concomitant]
     Dosage: UNK
  36. ONDANSETRON (ZOFRAN) [Concomitant]
     Indication: VOMITING
  37. PANTOPRAZOLE [Concomitant]
     Dosage: 40 MG, BID
     Route: 042
     Dates: end: 20120328
  38. LEVOFLOXACIN [Concomitant]
     Dosage: 750 MG, UNK
     Route: 042
     Dates: start: 20120401
  39. LISINOPRIL [Concomitant]
     Dosage: 10 MG, QD
  40. CHOLESTYRAMINE [Concomitant]
     Dosage: 4 G, BID
     Dates: end: 20120326
  41. OMEPRAZOLE [Concomitant]
     Dosage: 20 MG, BID
  42. MORPHINE SULFATE [Concomitant]
     Indication: PAIN
     Dosage: 2MG TO 6MG Q4H PRN UNK
     Route: 042

REACTIONS (8)
  - RESPIRATORY FAILURE [None]
  - ASPIRATION [None]
  - ENTERITIS [None]
  - CLOSTRIDIAL INFECTION [None]
  - COLITIS [None]
  - SEPTIC SHOCK [None]
  - UPPER GASTROINTESTINAL HAEMORRHAGE [None]
  - ENTEROCOCCAL INFECTION [None]
